FAERS Safety Report 5425682-7 (Version None)
Quarter: 2007Q3

REPORT INFORMATION
  Report Type: 
  Country: None (occurrence: None)
  Receive Date: 20070824
  Receipt Date: 20070813
  Transmission Date: 20080115
  Serious: Yes (Other)
  Sender: FDA-Public Use
  Company Number: US-PFIZER INC-2007068316

PATIENT
  Sex: Female
  Weight: 49.1 kg

DRUGS (9)
  1. CHANTIX [Suspect]
     Indication: SMOKING CESSATION THERAPY
  2. PROMETHAZINE [Concomitant]
  3. ATENOLOL [Concomitant]
  4. TEGRETOL [Concomitant]
  5. VALIUM [Concomitant]
  6. ROBAXIN [Concomitant]
  7. VICODIN [Concomitant]
  8. SYNTHROID [Concomitant]
  9. CYMBALTA [Concomitant]

REACTIONS (4)
  - ACTIVITIES OF DAILY LIVING IMPAIRED [None]
  - EATING DISORDER [None]
  - HYPOAESTHESIA [None]
  - PALPITATIONS [None]
